FAERS Safety Report 7801319-4 (Version None)
Quarter: 2011Q4

REPORT INFORMATION
  Report Type: 
  Country: None (occurrence: None)
  Receive Date: 20111006
  Receipt Date: 20111006
  Transmission Date: 20120403
  Serious: Yes (Hospitalization)
  Sender: FDA-Public Use
  Company Number: None

PATIENT
  Age: 31 Year
  Sex: Male
  Weight: 75.2 kg

DRUGS (1)
  1. PHENYTOIN [Suspect]
     Indication: CONVULSION
     Dosage: 200MG TID W/ MEDS PO  CHRONIC W/ RECENT WT. LOSS
     Route: 048

REACTIONS (3)
  - WEIGHT DECREASED [None]
  - GINGIVAL HYPERTROPHY [None]
  - TOXICITY TO VARIOUS AGENTS [None]
